FAERS Safety Report 20135596 (Version 1)
Quarter: 2021Q4

REPORT INFORMATION
  Report Type: Spontaneous
  Country: US (occurrence: None)
  Receive Date: 20211201
  Receipt Date: 20211201
  Transmission Date: 20220303
  Serious: Yes (Other)
  Sender: FDA-Public Use
  Company Number: None

PATIENT
  Age: 0 Day
  Sex: Male
  Weight: 2.9 kg

DRUGS (1)
  1. LEXAPRO [Suspect]
     Active Substance: ESCITALOPRAM OXALATE
     Indication: Depression

REACTIONS (2)
  - Neonatal respiratory distress [None]
  - Maternal drugs affecting foetus [None]

NARRATIVE: CASE EVENT DATE: 20200822
